FAERS Safety Report 6384144-3 (Version None)
Quarter: 2009Q4

REPORT INFORMATION
  Report Type: 
  Country: None (occurrence: None)
  Receive Date: 20091001
  Receipt Date: 20090921
  Transmission Date: 20100525
  Serious: Yes (Hospitalization, Other)
  Sender: FDA-Public Use
  Company Number: US-WYE-H11103509

PATIENT
  Sex: Female

DRUGS (5)
  1. IBUPROFEN/DIPHENHYDRAMINE CITRATE [Suspect]
     Indication: INSOMNIA
     Dosage: 2-3 TABLETS EVERY NIGHT
     Route: 048
     Dates: start: 20081224, end: 20090201
  2. IBUPROFEN/DIPHENHYDRAMINE CITRATE [Suspect]
     Dosage: 2-3 TABLETS EVERY NIGHT
     Route: 048
     Dates: start: 20080801, end: 20081115
  3. EQUATE [Suspect]
     Indication: INSOMNIA
     Dosage: 2-3 TABLETS EVERY NIGHT
     Route: 048
     Dates: start: 20090201, end: 20090430
  4. EQUATE [Suspect]
     Dosage: 2-3 TABLETS EVERY NIGHT
     Route: 048
     Dates: start: 20090503, end: 20090615
  5. EQUATE [Suspect]
     Dosage: 2-3 TABLETS EVERY NIGHT
     Route: 048
     Dates: start: 20090618, end: 20090722

REACTIONS (11)
  - BLOOD POTASSIUM ABNORMAL [None]
  - BLOOD PRESSURE INCREASED [None]
  - DELUSION [None]
  - DISORIENTATION [None]
  - LUDWIG ANGINA [None]
  - OVERDOSE [None]
  - PALPITATIONS [None]
  - PARANOIA [None]
  - PHYSICAL ASSAULT [None]
  - SLEEP TERROR [None]
  - VOMITING [None]
